FAERS Safety Report 16711099 (Version 1)
Quarter: 2019Q3

REPORT INFORMATION
  Report Type: Spontaneous
  Country: US (occurrence: US)
  Receive Date: 20190816
  Receipt Date: 20190816
  Transmission Date: 20191004
  Serious: No
  Sender: FDA-Public Use
  Company Number: US-SHIRE-US201926630

PATIENT
  Age: 14 Year
  Sex: Male

DRUGS (1)
  1. ELAPRASE [Suspect]
     Active Substance: IDURSULFASE
     Indication: MUCOPOLYSACCHARIDOSIS II
     Dosage: 36 MILLIGRAM, 1X/WEEK
     Route: 065
     Dates: start: 20090303

REACTIONS (2)
  - Retching [Unknown]
  - Weight increased [Unknown]

NARRATIVE: CASE EVENT DATE: 20190708
